FAERS Safety Report 5924851-7 (Version None)
Quarter: 2008Q4

REPORT INFORMATION
  Report Type: 
  Country: None (occurrence: None)
  Receive Date: 20081020
  Receipt Date: 20081020
  Transmission Date: 20090506
  Serious: Yes (Other)
  Sender: FDA-Public Use
  Company Number: None

PATIENT
  Age: 29 Year
  Sex: Male
  Weight: 90.7194 kg

DRUGS (1)
  1. ZICAM MATRIXX INITIATIVES [Suspect]
     Indication: NASAL CONGESTION
     Dosage: 1/2 SPRAYS 4-6 HOURS NASAL
     Route: 045
     Dates: start: 20081013, end: 20081013

REACTIONS (2)
  - AGEUSIA [None]
  - ANOSMIA [None]
